FAERS Safety Report 5151901-0 (Version None)
Quarter: 2006Q4

REPORT INFORMATION
  Report Type: 
  Country: None (occurrence: None)
  Receive Date: 20061031
  Receipt Date: 20061018
  Transmission Date: 20070319
  Serious: Yes (Other)
  Sender: FDA-Public Use
  Company Number: GBWYE179810 OCT06

PATIENT
  Age: 6 Year
  Sex: Male

DRUGS (1)
  1. REFACTO [Suspect]
     Indication: FACTOR VIII DEFICIENCY
     Dosage: 100 IU/KG 1X PER 1 PRN INTRAVENOUS
     Route: 042
     Dates: start: 20040614, end: 20061004

REACTIONS (1)
  - FACTOR VIII INHIBITION [None]
